FAERS Safety Report 8959802 (Version 3)
Quarter: 2013Q2

REPORT INFORMATION
  Report Type: Spontaneous
  Country: US (occurrence: US)
  Receive Date: 20121212
  Receipt Date: 20130404
  Transmission Date: 20140414
  Serious: No
  Sender: FDA-Public Use
  Company Number: US-009507513-1212USA003195

PATIENT
  Age: 17 Year
  Sex: Female
  Weight: 122.45 kg

DRUGS (1)
  1. IMPLANON [Suspect]
     Dosage: 1 ROD, UNK
     Route: 059
     Dates: start: 20091014

REACTIONS (3)
  - Medical device complication [Unknown]
  - No adverse event [Unknown]
  - Device difficult to use [Unknown]
